FAERS Safety Report 11852195 (Version 1)
Quarter: 2015Q4

REPORT INFORMATION
  Report Type: Spontaneous
  Country: US (occurrence: US)
  Receive Date: 20151218
  Receipt Date: 20151218
  Transmission Date: 20160305
  Serious: No
  Sender: FDA-Public Use
  Company Number: US-MEDA-2015110089

PATIENT

DRUGS (3)
  1. AEROSPAN [Suspect]
     Active Substance: FLUNISOLIDE
  2. FLOVENT [Concomitant]
     Active Substance: FLUTICASONE PROPIONATE
  3. ALBUTEROL. [Concomitant]
     Active Substance: ALBUTEROL

REACTIONS (2)
  - Muscle spasms [Unknown]
  - Cough [Unknown]
